FAERS Safety Report 11335760 (Version 1)
Quarter: 2015Q3

REPORT INFORMATION
  Report Type: Spontaneous
  Country: CA (occurrence: CA)
  Receive Date: 20150804
  Receipt Date: 20150804
  Transmission Date: 20151125
  Serious: Yes (Other)
  Sender: FDA-Public Use
  Company Number: CA-TEVA-582415ACC

PATIENT
  Age: 60 Year
  Sex: Male

DRUGS (8)
  1. TEVA-SUCRALFATE [Suspect]
     Active Substance: SUCRALFATE
     Indication: FOREIGN BODY
     Dosage: 3 GRAM DAILY;
     Route: 048
  2. ASA [Concomitant]
     Active Substance: ASPIRIN
     Route: 065
  3. METFORMIN [Concomitant]
     Active Substance: METFORMIN HYDROCHLORIDE
     Route: 065
  4. RAN-ATORVASTATIN [Concomitant]
     Route: 065
  5. RAN-RAMIPRIL [Concomitant]
     Route: 065
  6. RAN-PANTOPRAZOLE [Suspect]
     Active Substance: PANTOPRAZOLE SODIUM
     Indication: FOREIGN BODY
     Dosage: 40 MILLIGRAM DAILY;
     Route: 048
  7. CALCIUM [Concomitant]
     Active Substance: CALCIUM
     Route: 065
  8. VITAMIN D [Concomitant]
     Active Substance: CHOLECALCIFEROL
     Route: 065

REACTIONS (3)
  - Choking [Not Recovered/Not Resolved]
  - Drug ineffective [Not Recovered/Not Resolved]
  - Inappropriate schedule of drug administration [Not Recovered/Not Resolved]
